FAERS Safety Report 10167938 (Version 2)
Quarter: 2014Q2

REPORT INFORMATION
  Report Type: Spontaneous
  Country: US (occurrence: US)
  Receive Date: 20140512
  Receipt Date: 20140603
  Transmission Date: 20141212
  Serious: Yes (Hospitalization, Other)
  Sender: FDA-Public Use
  Company Number: US-GLAXOSMITHKLINE-A1071932A

PATIENT
  Age: 41 Year
  Sex: Male

DRUGS (7)
  1. LAMOTRIGINE [Suspect]
     Indication: MAJOR DEPRESSION
     Dosage: 100MG PER DAY
     Route: 048
  2. ADVAIR [Suspect]
     Indication: PRODUCT USED FOR UNKNOWN INDICATION
     Route: 065
  3. LAMICTAL XR [Suspect]
     Indication: NERVOUS SYSTEM DISORDER
     Dosage: 200MG UNKNOWN
     Dates: start: 20131123
  4. CITALOPRAM [Concomitant]
  5. ADVIL [Concomitant]
  6. ATIVAN [Concomitant]
  7. PHENYTOIN [Concomitant]

REACTIONS (4)
  - Suicidal ideation [Recovered/Resolved]
  - Overdose [Recovered/Resolved]
  - Depression [Unknown]
  - Anxiety [Unknown]
